FAERS Safety Report 23552679 (Version 2)
Quarter: 2024Q1

REPORT INFORMATION
  Report Type: Spontaneous
  Country: US (occurrence: US)
  Receive Date: 20240222
  Receipt Date: 20240228
  Transmission Date: 20240409
  Serious: No
  Sender: FDA-Public Use
  Company Number: US-BRISTOL-MYERS SQUIBB COMPANY-2024-028147

PATIENT
  Sex: Female

DRUGS (1)
  1. APIXABAN [Suspect]
     Active Substance: APIXABAN
     Indication: Product used for unknown indication

REACTIONS (1)
  - COVID-19 [Recovered/Resolved]
